FAERS Safety Report 10762675 (Version 1)
Quarter: 2015Q1

REPORT INFORMATION
  Report Type: Spontaneous
  Country: US (occurrence: US)
  Receive Date: 20150204
  Receipt Date: 20150204
  Transmission Date: 20150721
  Serious: No
  Sender: FDA-Public Use
  Company Number: US-009507513-1502USA001130

PATIENT
  Sex: Female

DRUGS (1)
  1. ZEGERID OTC CAPSULES [Suspect]
     Active Substance: OMEPRAZOLE\SODIUM BICARBONATE
     Indication: PRODUCT USED FOR UNKNOWN INDICATION
     Dosage: UNK, UNKNOWN
     Route: 048

REACTIONS (5)
  - Sneezing [Not Recovered/Not Resolved]
  - Cough [Not Recovered/Not Resolved]
  - Oropharyngeal pain [Unknown]
  - Glossodynia [Not Recovered/Not Resolved]
  - Aphthous stomatitis [Unknown]
